FAERS Safety Report 18522249 (Version 1)
Quarter: 2020Q4

REPORT INFORMATION
  Report Type: Spontaneous
  Country: DE (occurrence: DE)
  Receive Date: 20201119
  Receipt Date: 20201119
  Transmission Date: 20210114
  Serious: Yes (Hospitalization)
  Sender: FDA-Public Use
  Company Number: DE-MYLANLABS-2020M1094273

PATIENT
  Age: 73 Year
  Sex: Male

DRUGS (4)
  1. ACETYLSALICYLIC ACID [Concomitant]
     Active Substance: ASPIRIN
     Dosage: 100 MG, 0-1-0-0
  2. CANDESARTAN. [Suspect]
     Active Substance: CANDESARTAN
     Indication: PRODUCT USED FOR UNKNOWN INDICATION
     Dosage: 16 MG, 1-0-0-0
  3. CORTISON [Suspect]
     Active Substance: CORTISONE ACETATE
     Indication: PRODUCT USED FOR UNKNOWN INDICATION
     Dosage: 1-0-1-0, SEIT 31-01-2020, NASENSPRAY
     Route: 045
  4. TORASEMID [Concomitant]
     Active Substance: TORSEMIDE
     Dosage: 5 MG, 0.5-0-0-0

REACTIONS (2)
  - Memory impairment [Recovered/Resolved]
  - Amnesia [Recovered/Resolved]
